FAERS Safety Report 4686575-6 (Version None)
Quarter: 2005Q2

REPORT INFORMATION
  Report Type: 
  Country: None (occurrence: None)
  Receive Date: 20050606
  Receipt Date: 20050520
  Transmission Date: 20051028
  Serious: Yes (Other)
  Sender: FDA-Public Use
  Company Number: USA050598662

PATIENT
  Age: 86 Year
  Sex: Female

DRUGS (10)
  1. FORTEO [Suspect]
     Indication: OSTEOPOROSIS
     Dates: start: 20050101
  2. EVISTA [Suspect]
     Indication: OSTEOPOROSIS
     Dates: start: 20040501
  3. LIPITOR (ATORVASTATI CALCIUM) [Concomitant]
  4. TOPROL-XL [Concomitant]
  5. ALTACE (RAMIPRIL  /00885602/)) [Concomitant]
  6. LEVOXYL [Concomitant]
  7. PROTONIX [Concomitant]
  8. SINGULAIR (MONTELUKAST /01362601/) [Concomitant]
  9. COUMADIN [Concomitant]
  10. LASIX (FUROSEMIDE   /00032601/) [Concomitant]

REACTIONS (2)
  - FALL [None]
  - LOWER LIMB FRACTURE [None]
